FAERS Safety Report 4735918-3 (Version None)
Quarter: 2005Q3

REPORT INFORMATION
  Report Type: 
  Country: None (occurrence: None)
  Receive Date: 20050721
  Receipt Date: 20050525
  Transmission Date: 20060218
  Serious: No
  Sender: FDA-Public Use
  Company Number: 2005SP001020

PATIENT

DRUGS (2)
  1. LUNESTA [Suspect]
     Dosage: HS;ORAL
     Dates: start: 20050101, end: 20050101
  2. SEROQUEL [Concomitant]

REACTIONS (1)
  - DEPRESSION [None]
